FAERS Safety Report 6691702-5 (Version None)
Quarter: 2010Q2

REPORT INFORMATION
  Report Type: 
  Country: None (occurrence: None)
  Receive Date: 20100422
  Receipt Date: 20090825
  Transmission Date: 20101027
  Serious: No
  Sender: FDA-Public Use
  Company Number: US-ASTRAZENECA-2009SE09933

PATIENT
  Age: 23897 Day
  Sex: Male
  Weight: 90.7 kg

DRUGS (1)
  1. TOPROL-XL [Suspect]
     Route: 048
     Dates: start: 20080801

REACTIONS (2)
  - HYPOAESTHESIA [None]
  - PARAESTHESIA [None]
